FAERS Safety Report 17973384 (Version 1)
Quarter: 2020Q3

REPORT INFORMATION
  Report Type: Spontaneous
  Country: US (occurrence: US)
  Receive Date: 20200702
  Receipt Date: 20200702
  Transmission Date: 20201103
  Serious: Yes (Life-Threatening)
  Sender: FDA-Public Use
  Company Number: US-EMCURE PHARMACEUTICALS LTD-2020-EPL-000803

PATIENT
  Age: 50 Year
  Sex: Female
  Weight: 146.6 kg

DRUGS (14)
  1. VITAMIN K [Suspect]
     Active Substance: PHYTONADIONE
     Indication: PROCOAGULANT THERAPY
     Route: 065
  2. ERENUMAB [Concomitant]
     Active Substance: ERENUMAB
  3. ESTRADIOL. [Concomitant]
     Active Substance: ESTRADIOL
  4. PROTAMINE [Suspect]
     Active Substance: PROTAMINE
     Indication: PROCOAGULANT THERAPY
     Route: 065
  5. CLONAZEPAM. [Concomitant]
     Active Substance: CLONAZEPAM
  6. MONTELUKAST [Concomitant]
     Active Substance: MONTELUKAST SODIUM
  7. MYRBETRIQ [Concomitant]
     Active Substance: MIRABEGRON
  8. DESMOPRESSIN ACETATE. [Suspect]
     Active Substance: DESMOPRESSIN ACETATE
     Indication: PROCOAGULANT THERAPY
     Route: 065
  9. TRANEXAMIC ACID. [Suspect]
     Active Substance: TRANEXAMIC ACID
     Indication: PROCOAGULANT THERAPY
     Route: 065
  10. METOPROLOL. [Concomitant]
     Active Substance: METOPROLOL
  11. PANTOPRAZOLE [Concomitant]
     Active Substance: PANTOPRAZOLE
  12. ROPINIROLE. [Concomitant]
     Active Substance: ROPINIROLE
  13. AMITRIPTYLINE [Concomitant]
     Active Substance: AMITRIPTYLINE
  14. MIRTAZAPINE. [Concomitant]
     Active Substance: MIRTAZAPINE

REACTIONS (1)
  - Drug ineffective [Unknown]
